FAERS Safety Report 23282565 (Version 1)
Quarter: 2023Q4

REPORT INFORMATION
  Report Type: Spontaneous
  Country: US (occurrence: None)
  Receive Date: 20231208
  Receipt Date: 20231208
  Transmission Date: 20240110
  Serious: No
  Sender: FDA-Public Use
  Company Number: None

PATIENT
  Age: 44 Year
  Sex: Female

DRUGS (3)
  1. SERTRALINE [Suspect]
     Active Substance: SERTRALINE HYDROCHLORIDE
     Indication: Injury
     Dosage: FREQUENCY : DAILY;?
     Route: 048
     Dates: start: 20231012, end: 20231125
  2. SERTRALINE [Suspect]
     Active Substance: SERTRALINE HYDROCHLORIDE
     Indication: Stress
  3. BUPROPION [Concomitant]
     Active Substance: BUPROPION
     Dates: start: 20230801

REACTIONS (1)
  - Morbid thoughts [None]

NARRATIVE: CASE EVENT DATE: 20231114
